FAERS Safety Report 12530432 (Version 1)
Quarter: 2016Q3

REPORT INFORMATION
  Report Type: Spontaneous
  Country: US (occurrence: None)
  Receive Date: 20160705
  Receipt Date: 20160705
  Transmission Date: 20161109
  Serious: Yes (Death, Hospitalization)
  Sender: FDA-Public Use
  Company Number: None

PATIENT
  Age: 4 Year
  Sex: Male
  Weight: 20.9 kg

DRUGS (1)
  1. DEXAMETHASONE. [Suspect]
     Active Substance: DEXAMETHASONE
     Dates: end: 20160629

REACTIONS (5)
  - Brain herniation [None]
  - Escherichia sepsis [None]
  - Septic shock [None]
  - Cerebral ischaemia [None]
  - Pupil fixed [None]

NARRATIVE: CASE EVENT DATE: 20160622
